FAERS Safety Report 7585302-2 (Version None)
Quarter: 2011Q2

REPORT INFORMATION
  Report Type: 
  Country: None (occurrence: None)
  Receive Date: 20110623
  Receipt Date: 20110607
  Transmission Date: 20111010
  Serious: Yes (Life-Threatening, Hospitalization)
  Sender: FDA-Public Use
  Company Number: 2010004180

PATIENT
  Age: 67 Year
  Sex: Male
  Weight: 88 kg

DRUGS (2)
  1. BEVACIZUMAB (BEVACIZUMAB) INFUSION [Suspect]
     Indication: GALLBLADDER CANCER
     Dosage: 5 MG/KG, CYCLIC, IV NOS
     Route: 042
     Dates: start: 20060821
  2. ERLOTINIB HYDROCHLORIDE [Suspect]
     Indication: GALLBLADDER CANCER
     Dosage: 100 MG, UID/QD, ORAL
     Route: 048
     Dates: start: 20060821

REACTIONS (21)
  - JAUNDICE CHOLESTATIC [None]
  - PANCREATITIS [None]
  - FALL [None]
  - ALANINE AMINOTRANSFERASE INCREASED [None]
  - CHOLANGITIS [None]
  - BLOOD PHOSPHORUS ABNORMAL [None]
  - HAEMOGLOBIN ABNORMAL [None]
  - HYPONATRAEMIA [None]
  - HYPOMAGNESAEMIA [None]
  - BLOOD BILIRUBIN INCREASED [None]
  - PYREXIA [None]
  - INTERNATIONAL NORMALISED RATIO INCREASED [None]
  - CHOLECYSTITIS [None]
  - ABDOMINAL PAIN [None]
  - CHILLS [None]
  - HYPOKALAEMIA [None]
  - LOSS OF CONTROL OF LEGS [None]
  - BILE DUCT STENOSIS [None]
  - BACK PAIN [None]
  - BLOOD ALKALINE PHOSPHATASE INCREASED [None]
  - GAMMA-GLUTAMYLTRANSFERASE INCREASED [None]
